FAERS Safety Report 12631759 (Version 3)
Quarter: 2016Q3

REPORT INFORMATION
  Report Type: Spontaneous
  Country: US (occurrence: US)
  Receive Date: 20160808
  Receipt Date: 20160824
  Transmission Date: 20161109
  Serious: No
  Sender: FDA-Public Use
  Company Number: US-BEH-2016060914

PATIENT
  Sex: Female
  Weight: 94.35 kg

DRUGS (18)
  1. ESTRACE [Concomitant]
     Active Substance: ESTRADIOL
  2. PROAIR HFA [Concomitant]
     Active Substance: ALBUTEROL SULFATE
  3. ADVAIR HFA [Concomitant]
     Active Substance: FLUTICASONE PROPIONATE\SALMETEROL XINAFOATE
  4. TRIAMTERENE-HCTZ [Concomitant]
     Active Substance: HYDROCHLOROTHIAZIDE\TRIAMTERENE
  5. LORAZEPAM. [Concomitant]
     Active Substance: LORAZEPAM
  6. COMPLETE MULTIVITAMIN [Concomitant]
     Active Substance: VITAMINS
  7. FLAGYL [Concomitant]
     Active Substance: METRONIDAZOLE\METRONIDAZOLE HYDROCHLORIDE
  8. IMITREX [Concomitant]
     Active Substance: SUMATRIPTAN SUCCINATE
  9. METHENAMINE [Concomitant]
     Active Substance: METHENAMINE
  10. VITAMIN D3 [Concomitant]
     Active Substance: CHOLECALCIFEROL
  11. SINGULAIR [Concomitant]
     Active Substance: MONTELUKAST SODIUM
  12. HIZENTRA [Suspect]
     Active Substance: HUMAN IMMUNOGLOBULIN G
     Indication: IMMUNODEFICIENCY COMMON VARIABLE
     Dosage: 6 DAYS A WEEK
     Route: 058
  13. BACTRIM [Concomitant]
     Active Substance: SULFAMETHOXAZOLE\TRIMETHOPRIM
  14. EPIPEN [Concomitant]
     Active Substance: EPINEPHRINE
  15. AMBIEN [Concomitant]
     Active Substance: ZOLPIDEM TARTRATE
  16. ATENOLOL. [Concomitant]
     Active Substance: ATENOLOL
  17. ASPIRIN. [Concomitant]
     Active Substance: ASPIRIN
  18. RANITIDINE. [Concomitant]
     Active Substance: RANITIDINE

REACTIONS (1)
  - Urinary tract infection [Unknown]
